FAERS Safety Report 24702478 (Version 1)
Quarter: 2024Q4

REPORT INFORMATION
  Report Type: Spontaneous
  Country: US (occurrence: None)
  Receive Date: 20241205
  Receipt Date: 20241205
  Transmission Date: 20250115
  Serious: Yes (unspecified)
  Sender: Public
  Company Number: None

PATIENT
  Age: 7 Year
  Sex: Male
  Weight: 25.2 kg

DRUGS (6)
  1. MONTELUKAST SODIUM [Suspect]
     Active Substance: MONTELUKAST\MONTELUKAST SODIUM
     Indication: Asthma
     Dosage: FREQUENCY : DAILY;?
     Route: 048
     Dates: start: 20240909, end: 20241201
  2. MONTELUKAST SODIUM [Suspect]
     Active Substance: MONTELUKAST\MONTELUKAST SODIUM
     Indication: Multiple allergies
  3. QELBREE [Concomitant]
     Active Substance: VILOXAZINE HYDROCHLORIDE
  4. CETIRIZINE [Concomitant]
     Active Substance: CETIRIZINE HYDROCHLORIDE
  5. ADDERALL XR [Concomitant]
     Active Substance: AMPHETAMINE ASPARTATE\AMPHETAMINE SULFATE\DEXTROAMPHETAMINE SACCHARATE\DEXTROAMPHETAMINE SULFATE
  6. CHILDREN^S MULTIVITAMIN [Concomitant]

REACTIONS (13)
  - Psychomotor hyperactivity [None]
  - Nightmare [None]
  - Insomnia [None]
  - Irritability [None]
  - Anger [None]
  - Agitation [None]
  - Self-destructive behaviour [None]
  - Bite [None]
  - Autophobia [None]
  - Suicidal ideation [None]
  - Aggression [None]
  - Screaming [None]
  - Therapy cessation [None]

NARRATIVE: CASE EVENT DATE: 20241204
